FAERS Safety Report 4277622-4 (Version None)
Quarter: 2004Q1

REPORT INFORMATION
  Report Type: 
  Country: None (occurrence: None)
  Receive Date: 20040121
  Receipt Date: 20040109
  Transmission Date: 20041129
  Serious: Yes (Hospitalization)
  Sender: FDA-Public Use
  Company Number: ENZ-ABE-155

PATIENT
  Age: 42 Year
  Sex: Female
  Weight: 104 kg

DRUGS (15)
  1. ABELCET [Suspect]
     Indication: FUNGAL INFECTION
     Dosage: 1 MG/KG, DAILY IV
     Route: 042
     Dates: start: 20031107, end: 20031107
  2. ABELCET [Suspect]
     Indication: PROPHYLAXIS
     Dosage: 1 MG/KG, DAILY IV
     Route: 042
     Dates: start: 20031107, end: 20031107
  3. ALBECET (AMPHOTERICIN B LIPID COMPLEX INJ) [Suspect]
     Indication: FUNGAL INFECTION
     Dosage: 2.5 MG DAILY IV
     Route: 042
     Dates: start: 20031108, end: 20031109
  4. ALBECET (AMPHOTERICIN B LIPID COMPLEX INJ) [Suspect]
     Indication: PROPHYLAXIS
     Dosage: 2.5 MG DAILY IV
     Route: 042
     Dates: start: 20031108, end: 20031109
  5. PROVERA [Concomitant]
  6. PROTONIX [Concomitant]
  7. VALTREX [Concomitant]
  8. VORICONAZOLE [Concomitant]
  9. CIPROFLOXACIN [Concomitant]
  10. LINEZOLID [Concomitant]
  11. BACTRIM DS [Concomitant]
  12. ALLOPURINOL [Concomitant]
  13. AMBIEN [Concomitant]
  14. ZOFRAN [Concomitant]
  15. ATIVAN [Concomitant]

REACTIONS (11)
  - BLOOD CREATININE INCREASED [None]
  - CARDIAC TAMPONADE [None]
  - DIARRHOEA [None]
  - FEBRILE NEUTROPENIA [None]
  - HERPES VIRUS INFECTION [None]
  - HIV TEST POSITIVE [None]
  - METRORRHAGIA [None]
  - MUCOSAL INFLAMMATION [None]
  - NAUSEA [None]
  - PERICARDIAL EFFUSION [None]
  - URINARY TRACT INFECTION ENTEROCOCCAL [None]
